FAERS Safety Report 5933866-4 (Version None)
Quarter: 2008Q4

REPORT INFORMATION
  Report Type: 
  Country: None (occurrence: None)
  Receive Date: 20081024
  Receipt Date: 20081014
  Transmission Date: 20090506
  Serious: Yes (Hospitalization, Disabling)
  Sender: FDA-Public Use
  Company Number: 20398

PATIENT
  Age: 53 Year
  Sex: Female

DRUGS (5)
  1. METHOTREXATE [Suspect]
     Indication: ACUTE LYMPHOCYTIC LEUKAEMIA
  2. CYCLOPHOSPHAMIDE [Concomitant]
  3. VINCRISTINE [Concomitant]
  4. DEXAMETHASONE [Concomitant]
  5. CYTARABINE [Concomitant]

REACTIONS (5)
  - ASTHENIA [None]
  - DEMYELINATION [None]
  - MYELOPATHY [None]
  - PARAESTHESIA [None]
  - WHEELCHAIR USER [None]
